FAERS Safety Report 7681553-7 (Version None)
Quarter: 2011Q3

REPORT INFORMATION
  Report Type: 
  Country: None (occurrence: None)
  Receive Date: 20110812
  Receipt Date: 20110728
  Transmission Date: 20111222
  Serious: Yes (Hospitalization)
  Sender: FDA-Public Use
  Company Number: US-JUTA GMBH-2011-12362

PATIENT
  Age: 60 Year
  Sex: Female

DRUGS (3)
  1. CEFOXITIN [Suspect]
     Dosage: 2 G, UNK
  2. CEFOXITIN [Suspect]
     Indication: ABSCESS INTESTINAL
     Dosage: 1 G, Q 12 HRS
     Route: 042
  3. CIPROFLOXACIN HCL [Suspect]
     Indication: ABSCESS INTESTINAL
     Dosage: 400 MG, Q24H
     Route: 042

REACTIONS (2)
  - CATATONIA [None]
  - NEUROTOXICITY [None]
